FAERS Safety Report 10068023 (Version 2)
Quarter: 2014Q2

REPORT INFORMATION
  Report Type: Spontaneous
  Country: JP (occurrence: JP)
  Receive Date: 20140409
  Receipt Date: 20140409
  Transmission Date: 20141212
  Serious: Yes (Other)
  Sender: FDA-Public Use
  Company Number: JP-ROCHE-1353770

PATIENT
  Age: 83 Year
  Sex: Female
  Weight: 37 kg

DRUGS (5)
  1. TAMIFLU [Suspect]
     Indication: INFLUENZA
     Dosage: DOSAGE IS UNCERTAIN.
     Route: 048
     Dates: start: 20140215, end: 20140218
  2. EXELON [Suspect]
     Indication: INFLUENZA
     Route: 062
     Dates: start: 20140213, end: 20140218
  3. SULPYRINE [Concomitant]
     Route: 048
     Dates: end: 20140215
  4. ENSURE LIQUID [Concomitant]
     Dosage: DOSAGE IS UNCERTAIN.
     Route: 048
     Dates: start: 20131102
  5. PL [Concomitant]
     Route: 048
     Dates: start: 20140215

REACTIONS (2)
  - Blood creatine phosphokinase increased [Unknown]
  - Rhabdomyolysis [Recovered/Resolved]
